FAERS Safety Report 17954920 (Version 1)
Quarter: 2020Q2

REPORT INFORMATION
  Report Type: Report from Study
  Country: US (occurrence: US)
  Receive Date: 20200629
  Receipt Date: 20200629
  Transmission Date: 20200714
  Serious: No
  Sender: FDA-Public Use
  Company Number: NVSC2020US182284

PATIENT
  Age: 43 Year
  Sex: Female

DRUGS (1)
  1. XIIDRA [Suspect]
     Active Substance: LIFITEGRAST
     Indication: DRY EYE
     Dosage: 1DROP EACH EYE FREQUENCY: TWICE DAILY
     Route: 065

REACTIONS (2)
  - Product dose omission [Unknown]
  - Overdose [Unknown]
